FAERS Safety Report 17609165 (Version 1)
Quarter: 2020Q2

REPORT INFORMATION
  Report Type: Spontaneous
  Country: GB (occurrence: GB)
  Receive Date: 20200401
  Receipt Date: 20200401
  Transmission Date: 20200713
  Serious: Yes (Other)
  Sender: FDA-Public Use
  Company Number: GB-TEVA-2020-GB-1214905

PATIENT
  Age: 7 Year
  Sex: Male
  Weight: 30 kg

DRUGS (1)
  1. PREDNISOLONE. [Suspect]
     Active Substance: PREDNISOLONE
     Indication: CROUP INFECTIOUS
     Dosage: PATIENT WAS PRESCRIBED 20MG AND THEN GIVEN A SECOND DOSE OF 20MG 3 DAYS LATER
     Route: 048
     Dates: start: 20191112

REACTIONS (7)
  - Suicidal ideation [Unknown]
  - Insomnia [Recovering/Resolving]
  - Depression [Unknown]
  - Intrusive thoughts [Recovering/Resolving]
  - Mood altered [Unknown]
  - Paranoia [Recovering/Resolving]
  - Psychotic disorder [Recovered/Resolved]

NARRATIVE: CASE EVENT DATE: 20191116
